FAERS Safety Report 9494991 (Version 1)
Quarter: 2013Q3

REPORT INFORMATION
  Report Type: Report from Study
  Country: US (occurrence: US)
  Receive Date: 20130903
  Receipt Date: 20130903
  Transmission Date: 20140515
  Serious: Yes (Other)
  Sender: FDA-Public Use
  Company Number: US-JNJFOC-20130815115

PATIENT
  Sex: Female
  Weight: 72.12 kg

DRUGS (5)
  1. REMICADE [Suspect]
     Indication: RHEUMATOID ARTHRITIS
     Route: 042
     Dates: start: 2011
  2. METHOTREXATE [Concomitant]
     Indication: RHEUMATOID ARTHRITIS
     Dosage: STARTED 14 YEARS AGO
     Route: 048
  3. NAPROXEN [Concomitant]
     Indication: PAIN
     Dosage: STARTED 5 YEARS AGO
     Route: 048
  4. NAPROXEN [Concomitant]
     Indication: INFLAMMATION
     Dosage: STARTED 5 YEARS AGO
     Route: 048
  5. NAPROXEN [Concomitant]
     Indication: ARTHRITIS
     Dosage: STARTED 5 YEARS AGO
     Route: 048

REACTIONS (2)
  - Chondropathy [Not Recovered/Not Resolved]
  - Arthropathy [Not Recovered/Not Resolved]
